FAERS Safety Report 16209552 (Version 1)
Quarter: 2019Q2

REPORT INFORMATION
  Report Type: Spontaneous
  Country: US (occurrence: US)
  Receive Date: 20190417
  Receipt Date: 20190417
  Transmission Date: 20190711
  Serious: Yes (Hospitalization)
  Sender: FDA-Public Use
  Company Number: US-ANIPHARMA-2019-US-006743

PATIENT
  Age: 44 Year
  Sex: Female
  Weight: 76.2 kg

DRUGS (2)
  1. ANASTROZOLE. [Suspect]
     Active Substance: ANASTROZOLE
     Indication: BREAST CANCER
     Dosage: 1 MG
     Route: 065
     Dates: start: 201801, end: 201810
  2. IBRANCE [Suspect]
     Active Substance: PALBOCICLIB
     Dates: start: 201801, end: 201811

REACTIONS (2)
  - Pleural effusion [Unknown]
  - Anal haemorrhage [Recovered/Resolved]

NARRATIVE: CASE EVENT DATE: 20190322
